FAERS Safety Report 9581471 (Version 2)
Quarter: 2013Q4

REPORT INFORMATION
  Report Type: Spontaneous
  Country: JP (occurrence: JP)
  Receive Date: 20131002
  Receipt Date: 20131018
  Transmission Date: 20140711
  Serious: Yes (Other)
  Sender: FDA-Public Use
  Company Number: PHHY2013JP108705

PATIENT
  Sex: 0

DRUGS (1)
  1. REGITINE [Suspect]
     Indication: BLOOD PRESSURE INCREASED

REACTIONS (2)
  - Multi-organ failure [Unknown]
  - Blood pressure fluctuation [Unknown]
